FAERS Safety Report 24386290 (Version 1)
Quarter: 2024Q4

REPORT INFORMATION
  Report Type: Report from Study
  Country: CA (occurrence: CA)
  Receive Date: 20241001
  Receipt Date: 20241001
  Transmission Date: 20250115
  Serious: Yes (Other)
  Sender: ABBVIE
  Company Number: CA-ABBVIE-5940526

PATIENT
  Sex: Female
  Weight: 63.5 kg

DRUGS (1)
  1. RINVOQ [Suspect]
     Active Substance: UPADACITINIB
     Indication: Colitis ulcerative
     Route: 048
     Dates: start: 20221216

REACTIONS (7)
  - Cataract [Unknown]
  - Diarrhoea [Unknown]
  - Bone density decreased [Unknown]
  - Tooth loss [Unknown]
  - Impaired work ability [Unknown]
  - Social problem [Unknown]
  - Frequent bowel movements [Unknown]

NARRATIVE: CASE EVENT DATE: 20240101
